FAERS Safety Report 6500356-X (Version None)
Quarter: 2009Q4

REPORT INFORMATION
  Report Type: 
  Country: None (occurrence: None)
  Receive Date: 20091216
  Receipt Date: 20091204
  Transmission Date: 20100525
  Serious: Yes (Other)
  Sender: FDA-Public Use
  Company Number: ZA-ELI_LILLY_AND_COMPANY-ZA200912001598

PATIENT
  Age: 9 Year
  Sex: Female
  Weight: 26 kg

DRUGS (9)
  1. PROZAC [Suspect]
     Dosage: 5 MG, DAILY (1/D)
     Route: 065
  2. RIFAMPICIN [Interacting]
     Indication: TUBERCULOSIS
     Dosage: UNK, UNKNOWN
     Route: 065
  3. ISONIAZID [Concomitant]
     Indication: TUBERCULOSIS
     Dosage: UNK, UNKNOWN
     Route: 065
  4. PYRAZINAMIDE [Concomitant]
     Indication: TUBERCULOSIS
     Dosage: UNK, UNKNOWN
     Route: 065
  5. ETHIONAMIDE [Concomitant]
     Indication: TUBERCULOSIS
     Dosage: UNK, UNKNOWN
     Route: 065
  6. STAVUDINE [Concomitant]
     Indication: HIV INFECTION
  7. LAMIVUDINE [Concomitant]
     Indication: HIV INFECTION
  8. RITONAVIR [Concomitant]
     Indication: HIV INFECTION
  9. LOPINAVIR [Concomitant]
     Indication: HIV INFECTION

REACTIONS (3)
  - DELIRIUM [None]
  - DRUG INTERACTION [None]
  - SEROTONIN SYNDROME [None]
